FAERS Safety Report 10360565 (Version 3)
Quarter: 2014Q3

REPORT INFORMATION
  Report Type: Spontaneous
  Country: US (occurrence: US)
  Receive Date: 20140804
  Receipt Date: 20140829
  Transmission Date: 20150326
  Serious: No
  Sender: FDA-Public Use
  Company Number: US-PFIZER INC-2014216087

PATIENT
  Sex: Male

DRUGS (2)
  1. NEURONTIN [Suspect]
     Active Substance: GABAPENTIN
     Indication: BACK PAIN
     Dosage: UNK
     Dates: start: 2008
  2. NEURONTIN [Suspect]
     Active Substance: GABAPENTIN
     Indication: SCIATIC NERVE INJURY

REACTIONS (2)
  - Amnesia [Unknown]
  - Drug ineffective for unapproved indication [Unknown]
